FAERS Safety Report 7352061-8 (Version None)
Quarter: 2011Q1

REPORT INFORMATION
  Report Type: 
  Country: None (occurrence: None)
  Receive Date: 20110315
  Receipt Date: 20110309
  Transmission Date: 20110831
  Serious: Yes (Death)
  Sender: FDA-Public Use
  Company Number: JP-ASTELLAS-2011JP000966

PATIENT
  Age: 37 Year
  Sex: Female

DRUGS (10)
  1. OMEPRAL [Concomitant]
     Dosage: 20 MG, UNKNOWN/D
     Route: 048
  2. ASPARA-CA [Concomitant]
     Dosage: 1.2 G, UNKNOWN/D
     Route: 048
  3. DEPAKENE [Concomitant]
     Dosage: 400 MG, UNKNOWN/D
     Route: 048
  4. TACROLIMUS [Suspect]
     Indication: LUPUS NEPHRITIS
     Dosage: 1 MG, UNKNOWN/D
     Route: 048
     Dates: start: 20090304, end: 20090701
  5. URSO 250 [Concomitant]
     Dosage: 150 MG, UNKNOWN/D
     Route: 048
  6. ALFAROL [Concomitant]
     Dosage: 1 UG, UNKNOWN/D
     Route: 048
  7. BLOPRESS [Concomitant]
     Dosage: 8 MG, UNKNOWN/D
     Route: 048
  8. LIPITOR [Concomitant]
     Dosage: 10 MG, UNKNOWN/D
     Route: 048
  9. PRORENAL [Concomitant]
     Dosage: 30 UG, UNKNOWN/D
     Route: 048
  10. PREDNISOLONE [Suspect]
     Indication: LUPUS NEPHRITIS
     Dosage: 7 MG, UNKNOWN/D
     Route: 048

REACTIONS (2)
  - SEPSIS [None]
  - INTESTINAL PERFORATION [None]
